FAERS Safety Report 11462962 (Version 1)
Quarter: 2015Q3

REPORT INFORMATION
  Report Type: Spontaneous
  Country: US (occurrence: US)
  Receive Date: 20150831
  Receipt Date: 20150831
  Transmission Date: 20151125
  Serious: No
  Sender: FDA-Public Use
  Company Number: US-ELI_LILLY_AND_COMPANY-US201102004667

PATIENT
  Age: 39 Year
  Sex: Female

DRUGS (3)
  1. CYMBALTA [Suspect]
     Active Substance: DULOXETINE HYDROCHLORIDE
     Dosage: UNK, UNKNOWN
     Route: 065
     Dates: end: 20110214
  2. CRESTOR [Concomitant]
     Active Substance: ROSUVASTATIN CALCIUM
  3. CYMBALTA [Suspect]
     Active Substance: DULOXETINE HYDROCHLORIDE
     Indication: DEPRESSION
     Dosage: 60 MG, DAILY (1/D)

REACTIONS (8)
  - Vertigo [Not Recovered/Not Resolved]
  - Intentional product misuse [Recovered/Resolved]
  - Palpitations [Not Recovered/Not Resolved]
  - Wrong technique in product usage process [Recovered/Resolved]
  - Drug withdrawal syndrome [Not Recovered/Not Resolved]
  - Tremor [Not Recovered/Not Resolved]
  - Hot flush [Not Recovered/Not Resolved]
  - Thought blocking [Not Recovered/Not Resolved]

NARRATIVE: CASE EVENT DATE: 201102
